FAERS Safety Report 19202364 (Version 3)
Quarter: 2021Q2

REPORT INFORMATION
  Report Type: Report from Study
  Country: CA (occurrence: CA)
  Receive Date: 20210502
  Receipt Date: 20210615
  Transmission Date: 20210717
  Serious: Yes (Other)
  Sender: FDA-Public Use
  Company Number: CA-JNJFOC-20210454423

PATIENT
  Age: 63 Year
  Sex: Male
  Weight: 132 kg

DRUGS (1)
  1. REMICADE [Suspect]
     Active Substance: INFLIXIMAB
     Indication: CROHN^S DISEASE
     Route: 042
     Dates: start: 20130611

REACTIONS (5)
  - Defaecation urgency [Recovering/Resolving]
  - Abdominal pain lower [Recovered/Resolved]
  - Faeces discoloured [Unknown]
  - Diarrhoea [Recovered/Resolved]
  - Clostridium difficile infection [Unknown]

NARRATIVE: CASE EVENT DATE: 2021
